FAERS Safety Report 8756592 (Version 1)
Quarter: 2012Q4

REPORT INFORMATION
  Report Type: 
  Country: US (occurrence: US)
  Receive Date: 20120828
  Receipt Date: 20120828
  Transmission Date: 20130627
  Serious: No
  Sender: FDA-Public Use
  Company Number: US-009507513-1208USA008921

PATIENT

DRUGS (1)
  1. NEXPLANON [Suspect]
     Dosage: UNK
     Dates: start: 20120426, end: 20120816

REACTIONS (1)
  - Depression [Unknown]
